FAERS Safety Report 21672787 (Version 1)
Quarter: 2022Q4

REPORT INFORMATION
  Report Type: Report from Study
  Country: US (occurrence: US)
  Receive Date: 20221202
  Receipt Date: 20221202
  Transmission Date: 20230112
  Serious: Yes (Hospitalization)
  Sender: FDA-Public Use
  Company Number: US-ABBVIE-4220930

PATIENT
  Sex: Male

DRUGS (1)
  1. HUMIRA [Suspect]
     Active Substance: ADALIMUMAB
     Indication: Psoriasis
     Dosage: CITRATE FREE;?FORM STRENGTH: 40 MILLIGRAM
     Route: 058

REACTIONS (3)
  - SARS-CoV-2 test positive [Unknown]
  - Psoriasis [Recovering/Resolving]
  - Fall [Unknown]
